FAERS Safety Report 7472810-8 (Version None)
Quarter: 2011Q2

REPORT INFORMATION
  Report Type: 
  Country: None (occurrence: None)
  Receive Date: 20110511
  Receipt Date: 20110426
  Transmission Date: 20111010
  Serious: Yes (Other)
  Sender: FDA-Public Use
  Company Number: US-CELGENEUS-163-20785-11040456

PATIENT
  Age: 74 Year
  Sex: Female
  Weight: 93.5 kg

DRUGS (36)
  1. THALOMID [Suspect]
     Dosage: 100 MILLIGRAM
     Route: 048
     Dates: start: 20101225, end: 20110120
  2. VITAMIN C [Concomitant]
     Dosage: 1000 MILLIGRAM
     Route: 048
     Dates: start: 20080519
  3. FLUTICASONE-SALMETEROL [Concomitant]
     Dosage: 1 PUFF
     Route: 065
  4. OXYCODONE HCL [Concomitant]
     Dosage: 20 MILLIGRAM
     Route: 065
     Dates: start: 20080711
  5. AREDIA [Suspect]
     Dosage: 90
     Route: 051
     Dates: start: 20080715
  6. LORTAB [Concomitant]
     Dosage: 7.5/500
     Route: 065
     Dates: start: 20080519
  7. TIOTROPIUM BROMIDE [Concomitant]
     Dosage: 18 MILLIEQUIVALENTS
     Route: 048
  8. ALBUTEROL [Concomitant]
     Route: 055
     Dates: start: 20080519
  9. BENADRYL [Concomitant]
     Dosage: 2
     Route: 065
     Dates: start: 20090417
  10. THALOMID [Suspect]
     Dosage: 50 MILLIGRAM
     Route: 048
     Dates: start: 20090710
  11. MELPHALAN HYDROCHLORIDE [Suspect]
     Dosage: 9 MILLIGRAM/SQ. METER
     Route: 048
     Dates: start: 20080725, end: 20090612
  12. PREDNISONE [Suspect]
     Dosage: 2.5 MILLIGRAM
     Route: 048
     Dates: start: 20090807
  13. FISH OIL [Concomitant]
     Dosage: 1000 MILLIGRAM
     Route: 048
     Dates: start: 20090807
  14. PREDNISONE [Suspect]
     Dosage: 100 MILLIGRAM
     Route: 048
     Dates: start: 20080725, end: 20090612
  15. CALCIUM CARBONATE-VITAMIN D2 [Concomitant]
     Dosage: 600 MILLIGRAM
     Route: 048
     Dates: start: 20080519
  16. IRON B12 VITAMINS [Concomitant]
     Dosage: 250 MILLIGRAM
     Route: 048
  17. OMEGA III [Concomitant]
     Dosage: 1000 MILLIGRAM
     Route: 065
     Dates: start: 20080519
  18. ADVAIR DISKUS 100/50 [Concomitant]
     Dosage: 500/50
     Route: 065
     Dates: start: 20081003
  19. ZANTAC [Concomitant]
     Dosage: 20 MILLIGRAM
     Route: 065
     Dates: start: 20091030
  20. LOVASTATIN [Concomitant]
     Dosage: 20 MILLIGRAM
     Route: 065
     Dates: start: 20080519
  21. MULTI-VITAMINS [Concomitant]
     Route: 048
     Dates: start: 20080519
  22. OMEPRAZOLE [Concomitant]
     Dosage: 20 MILLIGRAM
     Route: 065
     Dates: start: 20081003
  23. HYDROCORTISONE [Concomitant]
     Route: 065
     Dates: start: 20090417
  24. SPIRIVA [Concomitant]
     Dosage: 18 MICROGRAM
     Route: 065
     Dates: start: 20090710
  25. FAMOTIDINE [Concomitant]
     Dosage: 20
     Route: 065
     Dates: start: 20090710
  26. NASONEX [Concomitant]
     Dosage: 2 PUFF
     Route: 045
     Dates: start: 20090807
  27. PNEUMOVAX 23 [Concomitant]
     Route: 065
     Dates: start: 20080715
  28. THALOMID [Suspect]
     Dosage: 100 MILLIGRAM
     Route: 048
     Dates: start: 20080725
  29. ASPIRIN [Concomitant]
     Dosage: 325 MILLIGRAM
     Route: 048
     Dates: start: 20080519
  30. VITAMIN E [Concomitant]
     Dosage: 200 MILLIGRAM
     Route: 048
  31. BETA CAROTENE [Concomitant]
     Dosage: 2
     Route: 065
     Dates: start: 20080519
  32. LEVAQUIN [Concomitant]
     Dosage: 500 MILLIGRAM
     Route: 065
     Dates: end: 20080724
  33. LASIX [Concomitant]
     Dosage: 40 MILLIGRAM
     Route: 065
     Dates: start: 20100415
  34. OXYCODONE HCL [Concomitant]
     Dosage: 5 MILLIGRAM
     Route: 065
  35. AMOXICILLIN/CLA [Concomitant]
     Dosage: 500/25
     Route: 065
     Dates: start: 20090710
  36. OXYGEN [Concomitant]
     Dosage: 2
     Route: 065

REACTIONS (1)
  - MYELODYSPLASTIC SYNDROME [None]
